FAERS Safety Report 7650212-9 (Version None)
Quarter: 2011Q3

REPORT INFORMATION
  Report Type: 
  Country: None (occurrence: None)
  Receive Date: 20110802
  Receipt Date: 20110628
  Transmission Date: 20111222
  Serious: Yes (Hospitalization)
  Sender: FDA-Public Use
  Company Number: KR-ROCHE-780681

PATIENT
  Weight: 61.1 kg

DRUGS (2)
  1. PACLITAXEL [Suspect]
     Indication: OESOPHAGEAL SQUAMOUS CELL CARCINOMA
     Dosage: DOSAGE FORM: VIAL.
     Route: 042
     Dates: start: 20110512, end: 20110607
  2. CAPECITABINE [Suspect]
     Indication: OESOPHAGEAL SQUAMOUS CELL CARCINOMA
     Dosage: LAST DOSE PRIOR TO SAE: 26 JUNE 2011
     Route: 048
     Dates: start: 20110512, end: 20110607

REACTIONS (1)
  - DYSPHAGIA [None]
